FAERS Safety Report 9684236 (Version 1)
Quarter: 2013Q4

REPORT INFORMATION
  Report Type: Spontaneous
  Country: US (occurrence: US)
  Receive Date: 20131112
  Receipt Date: 20131112
  Transmission Date: 20140711
  Serious: Yes (Hospitalization)
  Sender: FDA-Public Use
  Company Number: US-GLAXOSMITHKLINE-A1049220A

PATIENT
  Age: 48 Year
  Sex: Female
  Weight: 79.5 kg

DRUGS (6)
  1. WELLBUTRIN [Suspect]
     Indication: NERVOUS SYSTEM DISORDER
  2. LYRICA [Suspect]
     Indication: PAIN IN EXTREMITY
     Dosage: 150MG TWICE PER DAY
     Dates: start: 2008
  3. LASIX [Concomitant]
  4. POTASSIUM [Concomitant]
  5. COREG [Concomitant]
     Indication: CARDIAC DISORDER
  6. VITAMINS [Concomitant]

REACTIONS (10)
  - Loss of consciousness [Unknown]
  - Road traffic accident [Unknown]
  - Dehydration [Unknown]
  - Nervousness [Unknown]
  - Temperature regulation disorder [Unknown]
  - Hysterectomy [Unknown]
  - Nervous system disorder [Unknown]
  - Stress [Unknown]
  - Cardiac disorder [Unknown]
  - Off label use [Unknown]
